FAERS Safety Report 19763125 (Version 1)
Quarter: 2021Q3

REPORT INFORMATION
  Report Type: Spontaneous
  Country: GB (occurrence: GB)
  Receive Date: 20210830
  Receipt Date: 20210830
  Transmission Date: 20211014
  Serious: Yes (Other)
  Sender: FDA-Public Use
  Company Number: GB-TEVA-2021-GB-1945997

PATIENT
  Age: 58 Year
  Sex: Male

DRUGS (3)
  1. OMEPRAZOLE. [Concomitant]
     Active Substance: OMEPRAZOLE
     Indication: ILL-DEFINED DISORDER
  2. FLUOXETINE [Suspect]
     Active Substance: FLUOXETINE HYDROCHLORIDE
     Indication: ILL-DEFINED DISORDER
     Route: 065
  3. SIMVASTATINE [Concomitant]
     Active Substance: SIMVASTATIN
     Indication: ILL-DEFINED DISORDER

REACTIONS (11)
  - Anorgasmia [Not Recovered/Not Resolved]
  - Nausea [Recovering/Resolving]
  - Tremor [Recovering/Resolving]
  - Adverse drug reaction [Not Recovered/Not Resolved]
  - Dizziness [Recovering/Resolving]
  - Tinnitus [Not Recovered/Not Resolved]
  - Panic attack [Recovering/Resolving]
  - Adverse drug reaction [Recovering/Resolving]
  - Insomnia [Not Recovered/Not Resolved]
  - Emotional distress [Recovering/Resolving]
  - Muscular weakness [Recovering/Resolving]

NARRATIVE: CASE EVENT DATE: 202108
